FAERS Safety Report 8259839-7 (Version None)
Quarter: 2012Q2

REPORT INFORMATION
  Report Type: 
  Country: None (occurrence: None)
  Receive Date: 20120404
  Receipt Date: 20120330
  Transmission Date: 20120825
  Serious: Yes (Other)
  Sender: FDA-Public Use
  Company Number: CA-GLAXOSMITHKLINE-A0933345A

PATIENT
  Sex: Female
  Weight: 77.3 kg

DRUGS (4)
  1. SPIRIVA [Suspect]
     Indication: CHRONIC OBSTRUCTIVE PULMONARY DISEASE
     Route: 065
  2. MORPHINE [Concomitant]
  3. VENTOLIN [Concomitant]
  4. ADVAIR DISKUS 100/50 [Suspect]
     Indication: CHRONIC OBSTRUCTIVE PULMONARY DISEASE
     Dosage: 1PUFF TWICE PER DAY
     Route: 055
     Dates: start: 20080101

REACTIONS (12)
  - CONDITION AGGRAVATED [None]
  - TOOTH EXTRACTION [None]
  - COUGH [None]
  - CHEST PAIN [None]
  - GAIT DISTURBANCE [None]
  - DYSPNOEA [None]
  - CANDIDIASIS [None]
  - ARTHRITIS [None]
  - BONE DISORDER [None]
  - MYOCARDIAL INFARCTION [None]
  - DENTURE WEARER [None]
  - MOBILITY DECREASED [None]
